FAERS Safety Report 12871023 (Version 1)
Quarter: 2016Q4

REPORT INFORMATION
  Report Type: Spontaneous
  Country: EG (occurrence: EG)
  Receive Date: 20161021
  Receipt Date: 20161021
  Transmission Date: 20170207
  Serious: Yes (Other)
  Sender: FDA-Public Use
  Company Number: EG-JNJFOC-20161017983

PATIENT

DRUGS (1)
  1. TRAMADOL HYDROCHLORIDE. [Suspect]
     Active Substance: TRAMADOL HYDROCHLORIDE
     Indication: PRODUCT USED FOR UNKNOWN INDICATION
     Route: 065

REACTIONS (16)
  - Agoraphobia [Unknown]
  - Post-traumatic stress disorder [Unknown]
  - Drug dependence [Unknown]
  - Bipolar disorder [Unknown]
  - Generalised anxiety disorder [Unknown]
  - Depression [Unknown]
  - Schizophrenia [Unknown]
  - Substance-induced mood disorder [Unknown]
  - Phobia [Unknown]
  - Obsessive-compulsive disorder [Unknown]
  - Personality disorder [Unknown]
  - Persistent depressive disorder [Unknown]
  - Social anxiety disorder [Unknown]
  - Substance-induced psychotic disorder [Unknown]
  - Borderline personality disorder [Unknown]
  - Antisocial personality disorder [Unknown]
